FAERS Safety Report 12181573 (Version 1)
Quarter: 2016Q1

REPORT INFORMATION
  Report Type: Spontaneous
  Country: GB (occurrence: GB)
  Receive Date: 20160315
  Receipt Date: 20160315
  Transmission Date: 20160526
  Serious: Yes (Hospitalization)
  Sender: FDA-Public Use
  Company Number: GB-FERRINGPH-2016FE01144

PATIENT

DRUGS (1)
  1. PROPESS [Suspect]
     Active Substance: DINOPROSTONE
     Indication: PRODUCT USED FOR UNKNOWN INDICATION
     Route: 064

REACTIONS (1)
  - Hypoxic-ischaemic encephalopathy [Unknown]
